FAERS Safety Report 21084864 (Version 1)
Quarter: 2022Q3

REPORT INFORMATION
  Report Type: Spontaneous
  Country: US (occurrence: US)
  Receive Date: 20220714
  Receipt Date: 20220714
  Transmission Date: 20221026
  Serious: No
  Sender: FDA-Public Use
  Company Number: US-PERRIGO-21US008711

PATIENT
  Age: 9 Year
  Sex: Female
  Weight: 38.549 kg

DRUGS (1)
  1. CETIRIZINE HYDROCHLORIDE [Suspect]
     Active Substance: CETIRIZINE HYDROCHLORIDE
     Indication: Hypersensitivity
     Dosage: 30 ML, SINGLE
     Route: 048
     Dates: start: 20210623, end: 20210623

REACTIONS (4)
  - Somnolence [Recovered/Resolved]
  - Accidental overdose [Recovered/Resolved]
  - Drug administered in wrong device [Recovered/Resolved]
  - Expired product administered [Recovered/Resolved]

NARRATIVE: CASE EVENT DATE: 20210623
